FAERS Safety Report 6742637-0 (Version None)
Quarter: 2010Q2

REPORT INFORMATION
  Report Type: 
  Country: None (occurrence: None)
  Receive Date: 20100526
  Receipt Date: 20100519
  Transmission Date: 20101027
  Serious: Yes (Death, Hospitalization, Other)
  Sender: FDA-Public Use
  Company Number: JP-MERCK-1005USA03091

PATIENT
  Age: 71 Year
  Sex: Male
  Weight: 34 kg

DRUGS (5)
  1. PEPCID [Suspect]
     Route: 048
  2. PIPERACILLIN [Concomitant]
     Route: 051
  3. SODIUM CHLORIDE [Concomitant]
     Route: 048
  4. TRIHEXYPHENIDYL HYDROCHLORIDE [Concomitant]
     Route: 048
  5. VALSARTAN [Concomitant]
     Route: 048

REACTIONS (5)
  - CEREBRAL HAEMORRHAGE [None]
  - PNEUMONIA [None]
  - PNEUMONIA ASPIRATION [None]
  - TOOTH DISORDER [None]
  - VITAMIN K DEFICIENCY [None]
